FAERS Safety Report 13983812 (Version 4)
Quarter: 2018Q1

REPORT INFORMATION
  Report Type: Spontaneous
  Country: IT (occurrence: IT)
  Receive Date: 20170918
  Receipt Date: 20180228
  Transmission Date: 20180508
  Serious: Yes (Other)
  Sender: FDA-Public Use
  Company Number: IT-PFIZER INC-2017398172

PATIENT
  Age: 40 Year
  Sex: Female

DRUGS (3)
  1. SODIUM ALGINATE/SODIUM BICARBONATE [Suspect]
     Active Substance: SODIUM ALGINATE\SODIUM BICARBONATE
     Indication: OESOPHAGEAL CANDIDIASIS
     Dosage: UNK
     Dates: start: 20170831
  2. FLUCONAZOLE. [Suspect]
     Active Substance: FLUCONAZOLE
     Indication: OESOPHAGEAL CANDIDIASIS
     Dosage: UNK
     Dates: start: 20170831
  3. PANTOPRAZOLE [Suspect]
     Active Substance: PANTOPRAZOLE
     Indication: OESOPHAGEAL CANDIDIASIS
     Dosage: UNK
     Dates: start: 20170831

REACTIONS (5)
  - Abdominal pain [None]
  - Abdominal pain upper [None]
  - Pruritus generalised [Unknown]
  - Abdominal pain [Unknown]
  - Erythema [Unknown]

NARRATIVE: CASE EVENT DATE: 20170901
